FAERS Safety Report 21150384 (Version 2)
Quarter: 2023Q1

REPORT INFORMATION
  Report Type: Spontaneous
  Country: US (occurrence: US)
  Receive Date: 20220729
  Receipt Date: 20230123
  Transmission Date: 20230417
  Serious: No
  Sender: FDA-Public Use
  Company Number: US-NOVOPROD-911179

PATIENT
  Sex: Female

DRUGS (1)
  1. SEMAGLUTIDE [Suspect]
     Active Substance: SEMAGLUTIDE
     Indication: Weight control
     Dosage: 0.5 MG
     Route: 058
     Dates: start: 20211030

REACTIONS (5)
  - Back pain [Unknown]
  - Constipation [Unknown]
  - Suspected counterfeit product [Unknown]
  - Fatigue [Unknown]
  - Abdominal pain upper [Unknown]
